FAERS Safety Report 16654701 (Version 1)
Quarter: 2019Q3

REPORT INFORMATION
  Report Type: Spontaneous
  Country: NL (occurrence: NL)
  Receive Date: 20190801
  Receipt Date: 20190801
  Transmission Date: 20191004
  Serious: Yes (Death)
  Sender: FDA-Public Use
  Company Number: NL-SUN PHARMACEUTICAL INDUSTRIES LTD-2019RR-215846

PATIENT
  Age: 50 Year
  Sex: Male
  Weight: 70 kg

DRUGS (4)
  1. OXAZEPAM ACCORD 10MGOXAZEPAM ACCORD TABLET 10MGOXAZEPAM TABLET 10MG [Concomitant]
     Indication: PRODUCT USED FOR UNKNOWN INDICATION
     Dosage: (), UNK
     Route: 065
     Dates: start: 20170622
  2. TEMAZEPAM TEVA 10 MGTEMAZEPAM TEVA TABLET 10MG - NON-CURRENT DRUGTE... [Concomitant]
     Indication: PRODUCT USED FOR UNKNOWN INDICATION
     Dosage: (), UNK
     Route: 065
     Dates: start: 20170628
  3. ZOPICLON PCH 7,5 MGZOPICLON PCH TABLET 7,5MGZOPICLON TABLET 7,5MG [Concomitant]
     Indication: PRODUCT USED FOR UNKNOWN INDICATION
     Dosage: (), UNK
     Route: 065
     Dates: start: 20170626
  4. VENLAFAXINE [Suspect]
     Active Substance: VENLAFAXINE HYDROCHLORIDE
     Indication: PRODUCT USED FOR UNKNOWN INDICATION
     Dosage: 1X, 37 DOSEGE FORMS ONCE
     Route: 048
     Dates: start: 20050101

REACTIONS (1)
  - Completed suicide [Fatal]

NARRATIVE: CASE EVENT DATE: 20170730
